FAERS Safety Report 8234807-X (Version None)
Quarter: 2012Q1

REPORT INFORMATION
  Report Type: 
  Country: None (occurrence: None)
  Receive Date: 20120322
  Receipt Date: 20120307
  Transmission Date: 20120608
  Serious: Yes (Disabling, Other)
  Sender: FDA-Public Use
  Company Number: 2012-1207

PATIENT
  Age: 71 Year
  Sex: Female

DRUGS (2)
  1. DYSPORT [Suspect]
     Indication: MYOFASCIAL PAIN SYNDROME
     Dosage: 400 UNITS (400 UNITS, SINGLE CYCLE), INTRAMUSCULAR
     Route: 030
     Dates: start: 20120201, end: 20120201
  2. DYSPORT [Suspect]
     Indication: OFF LABEL USE
     Dosage: 400 UNITS (400 UNITS, SINGLE CYCLE), INTRAMUSCULAR
     Route: 030
     Dates: start: 20120201, end: 20120201

REACTIONS (2)
  - PAIN [None]
  - ARTHRALGIA [None]
